FAERS Safety Report 9603796 (Version 2)
Quarter: 2013Q4

REPORT INFORMATION
  Report Type: Report from Study
  Country: AU (occurrence: AU)
  Receive Date: 20131008
  Receipt Date: 20131008
  Transmission Date: 20140711
  Serious: Yes (Other)
  Sender: FDA-Public Use
  Company Number: AU-ROCHE-1254637

PATIENT
  Age: 54 Year
  Sex: Female

DRUGS (4)
  1. ACTEMRA [Suspect]
     Indication: RHEUMATOID ARTHRITIS
     Route: 042
     Dates: start: 20120906
  2. ACTEMRA [Suspect]
     Route: 042
     Dates: start: 20120906
  3. PREDNISOLONE [Concomitant]
  4. ENDEP [Concomitant]

REACTIONS (6)
  - Throat irritation [Recovered/Resolved]
  - Pharyngitis [Recovering/Resolving]
  - Oropharyngeal pain [Recovered/Resolved]
  - Insomnia [Recovered/Resolved]
  - Neuralgia [Recovered/Resolved]
  - Lethargy [Recovered/Resolved]
